FAERS Safety Report 9948834 (Version 4)
Quarter: 2014Q2

REPORT INFORMATION
  Report Type: Spontaneous
  Country: US (occurrence: US)
  Receive Date: 20140304
  Receipt Date: 20140424
  Transmission Date: 20141212
  Serious: Yes (Death)
  Sender: FDA-Public Use
  Company Number: US-009507513-1403USA000158

PATIENT
  Sex: Female

DRUGS (2)
  1. SINGULAIR [Suspect]
     Indication: ASTHMA
     Dosage: UNK
     Route: 048
     Dates: start: 2013
  2. DULERA [Suspect]
     Indication: ASTHMA
     Dosage: II PUFFS BID
     Route: 055
     Dates: start: 20130724

REACTIONS (2)
  - Asthma [Fatal]
  - Adverse event [Fatal]
